FAERS Safety Report 5622418-1 (Version None)
Quarter: 2008Q1

REPORT INFORMATION
  Report Type: 
  Country: None (occurrence: None)
  Receive Date: 20080114
  Receipt Date: 20070813
  Transmission Date: 20080703
  Serious: Yes (Hospitalization)
  Sender: FDA-Public Use
  Company Number: A03200705095

PATIENT
  Age: 39 Year
  Sex: Female
  Weight: 56.6996 kg

DRUGS (2)
  1. PLAVIX [Suspect]
     Indication: ARTERIAL THROMBOSIS LIMB
     Dosage: 75 MG QD - ORAL
     Route: 048
     Dates: start: 20070710, end: 20070801
  2. ACETYLSALICYLIC ACID SRT [Concomitant]

REACTIONS (4)
  - ABDOMINAL PAIN [None]
  - ASTHENIA [None]
  - CHEST PAIN [None]
  - HAEMORRHAGE [None]
